FAERS Safety Report 9704632 (Version 1)
Quarter: 2013Q4

REPORT INFORMATION
  Report Type: Spontaneous
  Country: JP (occurrence: JP)
  Receive Date: 20131122
  Receipt Date: 20131122
  Transmission Date: 20140711
  Serious: Yes (Other)
  Sender: FDA-Public Use
  Company Number: JP-ROCHE-1306709

PATIENT
  Age: 68 Year
  Sex: Male

DRUGS (4)
  1. BEVACIZUMAB [Suspect]
     Indication: RECTAL CANCER METASTATIC
     Route: 065
     Dates: end: 201105
  2. CAPECITABINE [Concomitant]
     Route: 065
     Dates: end: 201105
  3. CAPECITABINE [Concomitant]
     Dosage: PER DAY
     Route: 065
     Dates: start: 201210
  4. OXALIPLATIN [Concomitant]

REACTIONS (1)
  - IgA nephropathy [Recovered/Resolved]
